FAERS Safety Report 17775681 (Version 1)
Quarter: 2020Q2

REPORT INFORMATION
  Report Type: Spontaneous
  Country: TH (occurrence: TH)
  Receive Date: 20200513
  Receipt Date: 20200513
  Transmission Date: 20200714
  Serious: Yes (Hospitalization, Other)
  Sender: FDA-Public Use
  Company Number: TH-LUPIN PHARMACEUTICALS INC.-2020-02114

PATIENT
  Age: 21 Year
  Sex: Female

DRUGS (1)
  1. FLUOXETINE [Suspect]
     Active Substance: FLUOXETINE HYDROCHLORIDE
     Indication: PRODUCT USED FOR UNKNOWN INDICATION
     Dosage: UNK, HANDFUL AMOUNT
     Route: 048

REACTIONS (10)
  - Suicide attempt [Unknown]
  - Musculoskeletal stiffness [Recovered/Resolved]
  - Dystonia [Recovered/Resolved]
  - Electrocardiogram QT prolonged [Recovered/Resolved]
  - Overdose [Unknown]
  - Hyperreflexia [Recovered/Resolved]
  - Hypokalaemia [Recovered/Resolved]
  - Hypomagnesaemia [Recovered/Resolved]
  - Blepharospasm [Recovered/Resolved]
  - Sinus tachycardia [Recovered/Resolved]
